FAERS Safety Report 10330671 (Version 2)
Quarter: 2014Q3

REPORT INFORMATION
  Report Type: Report from Study
  Country: CZ (occurrence: CZ)
  Receive Date: 20140722
  Receipt Date: 20140909
  Transmission Date: 20150326
  Serious: Yes (Hospitalization)
  Sender: FDA-Public Use
  Company Number: PHHY2014CZ087048

PATIENT
  Age: 37 Year
  Sex: Female
  Weight: 60 kg

DRUGS (5)
  1. VIGANTOL//COLECALCIFEROL [Concomitant]
     Indication: PROPHYLAXIS
     Dates: start: 20120608, end: 20140623
  2. GILENYA [Suspect]
     Active Substance: FINGOLIMOD HYDROCHLORIDE
     Route: 048
  3. MAGNESIUM LACTICUM [Concomitant]
     Indication: MUSCLE SPASMS
     Dosage: 1 DF, PRN
     Route: 048
     Dates: start: 20120312, end: 20140623
  4. CIPRALEX [Concomitant]
     Active Substance: ESCITALOPRAM OXALATE
     Indication: DEPRESSION
     Dosage: 10 MG, QD
     Route: 048
     Dates: start: 201010, end: 20140623
  5. IBUPROFEN. [Concomitant]
     Active Substance: IBUPROFEN
     Indication: INFLUENZA LIKE ILLNESS
     Dosage: 200 MG, PRN
     Dates: start: 20110926, end: 20140623

REACTIONS (6)
  - Headache [Unknown]
  - Visual acuity reduced [Unknown]
  - Aphasia [Unknown]
  - Central nervous system lesion [Unknown]
  - Cerebrovascular accident [Recovered/Resolved with Sequelae]
  - Slow speech [Unknown]

NARRATIVE: CASE EVENT DATE: 20140618
